FAERS Safety Report 5263390-6 (Version None)
Quarter: 2007Q1

REPORT INFORMATION
  Report Type: 
  Country: None (occurrence: None)
  Receive Date: 20070313
  Receipt Date: 20070302
  Transmission Date: 20070707
  Serious: Yes (Hospitalization)
  Sender: FDA-Public Use
  Company Number: HQWYE736106MAR07

PATIENT

DRUGS (1)
  1. TYGACIL [Suspect]
     Indication: POSTOPERATIVE WOUND INFECTION
     Dosage: 100 MG INITIAL/50 MG EVERY 12 HOURS
     Route: 042
     Dates: start: 20070101, end: 20070101

REACTIONS (2)
  - LIVER DISORDER [None]
  - SKIN DISCOLOURATION [None]
